FAERS Safety Report 4500820-9 (Version None)
Quarter: 2004Q4

REPORT INFORMATION
  Report Type: 
  Country: None (occurrence: None)
  Receive Date: 20041115
  Receipt Date: 20041105
  Transmission Date: 20050328
  Serious: Yes (Hospitalization)
  Sender: FDA-Public Use
  Company Number: DE-MERCK-0411DEU00111

PATIENT
  Age: 67 Year
  Sex: Female

DRUGS (1)
  1. VIOXX [Suspect]
     Indication: PAIN
     Route: 048
     Dates: start: 20000101, end: 20020214

REACTIONS (3)
  - ADVERSE EVENT [None]
  - CEREBROVASCULAR ACCIDENT [None]
  - GENERAL PHYSICAL HEALTH DETERIORATION [None]
